FAERS Safety Report 11914086 (Version 1)
Quarter: 2016Q1

REPORT INFORMATION
  Report Type: Spontaneous
  Country: BR (occurrence: BR)
  Receive Date: 20160113
  Receipt Date: 20160113
  Transmission Date: 20160526
  Serious: Yes (Other)
  Sender: FDA-Public Use
  Company Number: PHHY2016BR000659

PATIENT
  Age: 44 Year
  Sex: Female

DRUGS (1)
  1. ETHINYLESTRADIOL+DROSPIRENONE SANDOZ [Suspect]
     Active Substance: DROSPIRENONE\ETHINYL ESTRADIOL
     Indication: MENSTRUAL CYCLE MANAGEMENT
     Route: 048
     Dates: start: 201512, end: 20151231

REACTIONS (5)
  - Pain [Unknown]
  - Apparent death [Unknown]
  - Throat tightness [Unknown]
  - Dyspnoea [Unknown]
  - Abdominal pain upper [Unknown]
